FAERS Safety Report 7658514-7 (Version None)
Quarter: 2011Q3

REPORT INFORMATION
  Report Type: 
  Country: None (occurrence: None)
  Receive Date: 20110805
  Receipt Date: 20110728
  Transmission Date: 20111222
  Serious: Yes (Death, Life-Threatening, Hospitalization)
  Sender: FDA-Public Use
  Company Number: NL-CELGENEUS-114-21880-11052771

PATIENT
  Age: 80 Year
  Sex: Male

DRUGS (10)
  1. REVLIMID [Suspect]
     Indication: MULTIPLE MYELOMA
     Route: 048
     Dates: start: 20081202, end: 20110501
  2. AMITRIPTYLINE HCL [Concomitant]
     Dosage: .252 MILLIGRAM
     Route: 065
  3. DARBEPOETIN ALFA [Concomitant]
  4. ATORVASTAN [Concomitant]
     Route: 065
  5. FUROSEMIDE [Concomitant]
     Dosage: 30 MILLIGRAM
     Route: 065
  6. ACETYLSALICYLIC ACID SRT [Concomitant]
     Route: 065
  7. DARBEPOETIN ALFA [Concomitant]
     Indication: ANAEMIA
     Dosage: 7.1429 MICROGRAM
     Route: 065
     Dates: start: 20090428
  8. CARDIBEN [Concomitant]
     Dosage: 12.5 MILLIGRAM
     Route: 065
  9. LISINOPRIL [Concomitant]
     Dosage: 5 MILLIGRAM
     Route: 065
  10. ALFACALCIDOL [Concomitant]
     Dosage: 80 MILLIGRAM
     Route: 065

REACTIONS (3)
  - RENAL FAILURE CHRONIC [None]
  - ESCHERICHIA SEPSIS [None]
  - BILE DUCT CANCER [None]
